FAERS Safety Report 8064326-5 (Version None)
Quarter: 2012Q1

REPORT INFORMATION
  Report Type: 
  Country: None (occurrence: None)
  Receive Date: 20120123
  Receipt Date: 20120113
  Transmission Date: 20120608
  Serious: Yes (Hospitalization, Other)
  Sender: FDA-Public Use
  Company Number: JP-CELGENEUS-087-50794-11053906

PATIENT
  Sex: Female
  Weight: 54 kg

DRUGS (8)
  1. OMEPRAZOLE [Concomitant]
     Route: 065
     Dates: start: 20110319, end: 20110620
  2. ALLOPURINOL [Concomitant]
     Route: 065
     Dates: start: 20110429, end: 20110510
  3. ASPARA POTASSIUM [Concomitant]
     Route: 065
     Dates: start: 20110428, end: 20110506
  4. FLUCONAZOLE [Concomitant]
     Route: 065
     Dates: start: 20110319, end: 20110620
  5. SODIUM BICARBONATE [Concomitant]
     Route: 065
     Dates: start: 20110425, end: 20110501
  6. VIDAZA [Suspect]
     Dosage: 75 MILLIGRAM/SQ. METER
     Route: 058
     Dates: start: 20110425, end: 20110427
  7. DAIPHEN [Concomitant]
     Route: 065
     Dates: start: 20110319, end: 20110620
  8. FUROSEMIDE [Concomitant]
     Route: 065
     Dates: start: 20110429, end: 20110511

REACTIONS (7)
  - OEDEMA [None]
  - WEIGHT INCREASED [None]
  - BLOOD CREATININE INCREASED [None]
  - PYREXIA [None]
  - PLATELET COUNT DECREASED [None]
  - ANAEMIA [None]
  - HYPOKALAEMIA [None]
